FAERS Safety Report 18926437 (Version 3)
Quarter: 2025Q1

REPORT INFORMATION
  Report Type: Spontaneous
  Country: FR (occurrence: FR)
  Receive Date: 20210223
  Receipt Date: 20250331
  Transmission Date: 20250408
  Serious: Yes (Hospitalization, Other)
  Sender: UCB
  Company Number: None

PATIENT
  Age: 103 Year
  Sex: Female

DRUGS (23)
  1. VIMPAT [Suspect]
     Active Substance: LACOSAMIDE
     Indication: Product used for unknown indication
     Route: 048
     Dates: start: 20201217, end: 20201217
  2. VIMPAT [Suspect]
     Active Substance: LACOSAMIDE
     Indication: Product administration error
  3. NITROFURANTOIN [Suspect]
     Active Substance: NITROFURANTOIN
     Indication: Product administration error
     Route: 048
     Dates: start: 20201217, end: 20201217
  4. NITROFURANTOIN [Suspect]
     Active Substance: NITROFURANTOIN
     Indication: Product used for unknown indication
  5. FERROUS FUMARATE [Suspect]
     Active Substance: FERROUS FUMARATE
     Indication: Product administration error
     Route: 048
     Dates: start: 20201217, end: 20201217
  6. FERROUS FUMARATE [Suspect]
     Active Substance: FERROUS FUMARATE
     Indication: Product used for unknown indication
  7. POLYETHYLENE GLYCOLS [Suspect]
     Active Substance: POLYETHYLENE GLYCOLS
     Indication: Product administration error
     Route: 048
     Dates: start: 20201217, end: 20201217
  8. POLYETHYLENE GLYCOLS [Suspect]
     Active Substance: POLYETHYLENE GLYCOLS
     Indication: Product used for unknown indication
  9. FOLIC ACID [Suspect]
     Active Substance: FOLIC ACID
     Indication: Product administration error
     Route: 048
     Dates: start: 20201217, end: 20201217
  10. FOLIC ACID [Suspect]
     Active Substance: FOLIC ACID
     Indication: Product used for unknown indication
  11. RAMIPRIL [Suspect]
     Active Substance: RAMIPRIL
     Indication: Product administration error
     Route: 048
     Dates: start: 20201217, end: 20201217
  12. RAMIPRIL [Suspect]
     Active Substance: RAMIPRIL
     Indication: Product used for unknown indication
  13. POTASSIUM CHLORIDE [Suspect]
     Active Substance: POTASSIUM CHLORIDE
     Indication: Product administration error
     Route: 048
     Dates: start: 20201217, end: 20201217
  14. POTASSIUM CHLORIDE [Suspect]
     Active Substance: POTASSIUM CHLORIDE
     Indication: Product used for unknown indication
  15. DOLIPRANE [Suspect]
     Active Substance: ACETAMINOPHEN
     Indication: Product administration error
     Route: 048
     Dates: start: 20201217, end: 20201217
  16. DOLIPRANE [Suspect]
     Active Substance: ACETAMINOPHEN
     Indication: Product used for unknown indication
  17. CHOLECALCIFEROL [Suspect]
     Active Substance: CHOLECALCIFEROL
     Indication: Product administration error
     Route: 048
     Dates: start: 20201217, end: 20201217
  18. CHOLECALCIFEROL [Suspect]
     Active Substance: CHOLECALCIFEROL
     Indication: Product used for unknown indication
  19. BISOPROLOL [Suspect]
     Active Substance: BISOPROLOL
     Indication: Product administration error
     Route: 048
     Dates: start: 20201217, end: 20201217
  20. BISOPROLOL [Suspect]
     Active Substance: BISOPROLOL
     Indication: Product used for unknown indication
  21. BUTYLSCOPOLAMINE BROMIDE [Suspect]
     Active Substance: BUTYLSCOPOLAMINE BROMIDE
     Indication: Product used for unknown indication
     Route: 048
     Dates: start: 20201217, end: 20201217
  22. FOLIC ACID [Suspect]
     Active Substance: FOLIC ACID
     Indication: Product administration error
     Dates: start: 20201217, end: 20201217
  23. FOLIC ACID [Suspect]
     Active Substance: FOLIC ACID
     Indication: Product used for unknown indication

REACTIONS (7)
  - Loss of consciousness [Recovered/Resolved]
  - Malaise [Recovered/Resolved]
  - Bradycardia [Recovered/Resolved]
  - Hypotension [Recovered/Resolved]
  - Shock [Recovered/Resolved]
  - Product administration error [Unknown]
  - Wrong patient received product [Unknown]

NARRATIVE: CASE EVENT DATE: 20201217
